FAERS Safety Report 5755810-5 (Version None)
Quarter: 2008Q2

REPORT INFORMATION
  Report Type: 
  Country: None (occurrence: None)
  Receive Date: 20080528
  Receipt Date: 20080522
  Transmission Date: 20081010
  Serious: Yes (Hospitalization)
  Sender: FDA-Public Use
  Company Number: LTI2008A00127

PATIENT
  Age: 63 Year
  Sex: Male
  Weight: 79 kg

DRUGS (4)
  1. LEUPROLIDE ACETATE [Suspect]
     Indication: PROSTATE CANCER
     Dosage: 3.75 MG (3.75 MG. 1 IN 1 M); SUBCUTANEOUS
     Route: 058
     Dates: start: 20080305, end: 20080305
  2. CASODEX [Suspect]
     Indication: PROSTATE CANCER
     Dosage: 50 MG (50 MG, 1 IN 1 D); ORAL
     Route: 048
     Dates: start: 20080305, end: 20080305
  3. SUTENT [Concomitant]
  4. AMOXICILLIN [Concomitant]

REACTIONS (3)
  - CYTOLYTIC HEPATITIS [None]
  - PANCREATIC ENZYMES INCREASED [None]
  - PYREXIA [None]
